FAERS Safety Report 13709761 (Version 2)
Quarter: 2017Q4

REPORT INFORMATION
  Report Type: Report from Study
  Country: US (occurrence: US)
  Receive Date: 20170703
  Receipt Date: 20171002
  Transmission Date: 20180320
  Serious: Yes (Hospitalization, Other)
  Sender: FDA-Public Use
  Company Number: US-ROCHE-1954774

PATIENT
  Sex: Male
  Weight: 85.9 kg

DRUGS (6)
  1. RITUXIMAB. [Suspect]
     Active Substance: RITUXIMAB
     Dosage: CYCLE 2 CYCLE 1 ONLY; FLAT DOSE
     Route: 042
  2. PEGFILGRASTIM [Suspect]
     Active Substance: PEGFILGRASTIM
     Indication: CHRONIC LYMPHOCYTIC LEUKAEMIA
     Dosage: 3 OF COURSE 1 AND ON DAY 2 OF COURSE 2-6
     Route: 058
     Dates: start: 20090921
  3. BEVACIZUMAB. [Suspect]
     Active Substance: BEVACIZUMAB
     Indication: CHRONIC LYMPHOCYTIC LEUKAEMIA
     Dosage: DAY 1 CYCLE 1-5, 22 ET 43 CYCLE 8?DATE OF LAST DOSE ADMINISTERED 16/FEB/2010 (3930 MG)
     Route: 042
     Dates: start: 20090921
  4. CYCLOPHOSPHAMIDE. [Suspect]
     Active Substance: CYCLOPHOSPHAMIDE
     Indication: CHRONIC LYMPHOCYTIC LEUKAEMIA
     Dosage: DAY 2 (CYCLE 1 ONLY)  DAY 1 (CYCLE 2-6)?DATE OF LAST DOED: 04/JAN/2010 (1236 MG)
     Route: 042
     Dates: start: 20090921
  5. RITUXIMAB. [Suspect]
     Active Substance: RITUXIMAB
     Indication: CHRONIC LYMPHOCYTIC LEUKAEMIA
     Dosage: CYCLE 3 (CYCLE 1 ONLY)  DAY 1 (CYCLE 2-6)?DATE OF LAST DOED: 04/JAN/2010 (773 MG)
     Route: 042
     Dates: start: 20090921
  6. PENTOSTATIN. [Suspect]
     Active Substance: PENTOSTATIN
     Indication: CHRONIC LYMPHOCYTIC LEUKAEMIA
     Dosage: DAY 2 (CYCLE 1 ONLY)  DAY 1 (CYCLE 2-6)?DATE OF LAST DOED: 04/JAN/2010 (4 MG)
     Route: 042
     Dates: start: 20090921

REACTIONS (10)
  - Proteinuria [Unknown]
  - Dyspnoea [Unknown]
  - Cystitis [Unknown]
  - Vomiting [Unknown]
  - Oedema peripheral [Unknown]
  - Lung infiltration [Unknown]
  - Neutrophil count decreased [Unknown]
  - Urinary bladder haemorrhage [Unknown]
  - Cough [Unknown]
  - Pneumonitis [Unknown]

NARRATIVE: CASE EVENT DATE: 20100225
